FAERS Safety Report 7867288-6 (Version None)
Quarter: 2011Q4

REPORT INFORMATION
  Report Type: 
  Country: None (occurrence: None)
  Receive Date: 20111028
  Receipt Date: 20111012
  Transmission Date: 20120403
  Serious: Yes (Hospitalization)
  Sender: FDA-Public Use
  Company Number: PHHY2011JP91578

PATIENT
  Sex: Female
  Weight: 38 kg

DRUGS (10)
  1. PROGRAF [Suspect]
     Dosage: 8 MG, UNK
     Route: 048
     Dates: start: 20090204
  2. PROGRAF [Suspect]
     Indication: RENAL TRANSPLANT
     Dosage: 8 MG, UNK
     Route: 048
     Dates: start: 20090129
  3. MYCOPHENOLATE MOFETIL (CELLCEPT) [Suspect]
     Indication: RENAL TRANSPLANT
     Dosage: 1000 MG, UNK
     Route: 048
     Dates: start: 20090120
  4. PREDNISOLONE [Concomitant]
     Indication: RENAL TRANSPLANT
     Dosage: 50 MG, UNK
     Route: 042
     Dates: start: 20090203, end: 20090203
  5. SIMULECT [Suspect]
     Dosage: 20 MG, UNK
     Route: 042
     Dates: start: 20090207, end: 20090207
  6. PREDNISOLONE [Suspect]
     Dosage: 10 MG, UNK
     Route: 048
     Dates: start: 20090120, end: 20090202
  7. PREDNISOLONE [Suspect]
     Dosage: 10 MG, UNK
     Route: 048
     Dates: start: 20090204
  8. SIMULECT [Suspect]
     Indication: RENAL TRANSPLANT
     Dosage: 20 MG, UNK
     Route: 042
     Dates: start: 20090203, end: 20090203
  9. MYCOPHENOLATE MOFETIL (CELLCEPT) [Suspect]
     Dosage: 1000 MG, UNK
     Route: 048
     Dates: start: 20090204
  10. PROGRAF [Suspect]
     Dosage: 2 MG, UNK
     Route: 042
     Dates: start: 20090204

REACTIONS (7)
  - BLOOD CREATININE INCREASED [None]
  - BLOOD UREA INCREASED [None]
  - TOXICITY TO VARIOUS AGENTS [None]
  - RENAL IMPAIRMENT [None]
  - BLOOD PRESSURE INCREASED [None]
  - COMPLICATIONS OF TRANSPLANTED KIDNEY [None]
  - RENAL DISORDER [None]
